FAERS Safety Report 12506796 (Version 1)
Quarter: 2016Q2

REPORT INFORMATION
  Report Type: Report from Study
  Country: CA (occurrence: CA)
  Receive Date: 20160628
  Receipt Date: 20160628
  Transmission Date: 20160815
  Serious: Yes (Other)
  Sender: FDA-Public Use
  Company Number: CA-AMGEN-CANSL2016081958

PATIENT
  Age: 64 Year
  Sex: Female

DRUGS (17)
  1. TRIAMCINOLONE [Concomitant]
     Active Substance: TRIAMCINOLONE
     Dosage: 50 MG, BID
  2. TRIAMCINOLONE [Concomitant]
     Active Substance: TRIAMCINOLONE
     Dosage: 50 MG, PRN
  3. TELMISARTAN. [Concomitant]
     Active Substance: TELMISARTAN
     Dosage: 40 MG, ONCE A DAY
  4. CARVEDILOL. [Concomitant]
     Active Substance: CARVEDILOL
     Dosage: 125 MG, BID (AM AND SUPPER)
     Route: 048
  5. ENBREL [Suspect]
     Active Substance: ETANERCEPT
     Indication: PSORIASIS
     Dosage: 50 MG, TWICE WEEKLY
     Route: 065
     Dates: start: 20090112
  6. VENTOLIN [Concomitant]
     Active Substance: ALBUTEROL SULFATE
     Dosage: UNK UNK, AS NEEDED
  7. ATARAX [Concomitant]
     Active Substance: HYDROXYZINE\HYDROXYZINE HYDROCHLORIDE
     Dosage: 25 MG, QHS
  8. CLOBETASOL [Concomitant]
     Active Substance: CLOBETASOL
     Dosage: UNK
  9. LASIX [Concomitant]
     Active Substance: FUROSEMIDE
     Dosage: 40 MG, ONCE A DAY
  10. VENTOLIN [Concomitant]
     Active Substance: ALBUTEROL SULFATE
     Dosage: 2 PUFFS, Q 4-6 HR AS NEEDED
  11. TYLENOL WITH CODEINE [Concomitant]
     Active Substance: ACETAMINOPHEN\CODEINE PHOSPHATE
     Dosage: UNK, Q 4-6HRS
  12. UREMOL [Concomitant]
     Dosage: UNK
  13. LORAZEPAM. [Concomitant]
     Active Substance: LORAZEPAM
     Dosage: UNK UNK, AS NEEDED
     Route: 060
  14. TYLENOL WITH CODEINE [Concomitant]
     Active Substance: ACETAMINOPHEN\CODEINE PHOSPHATE
     Dosage: UNK UNK, AS NEEDED
  15. DOVONEX [Concomitant]
     Active Substance: CALCIPOTRIENE
     Dosage: UNK
  16. DOVOBET [Concomitant]
     Active Substance: BETAMETHASONE\CALCIPOTRIENE
     Dosage: UNK
  17. HUMALOG [Concomitant]
     Active Substance: INSULIN LISPRO
     Dosage: 17 UNIT, TID (AM. NOON, SUPPER)

REACTIONS (7)
  - Chest pain [Unknown]
  - Arrhythmia [Unknown]
  - Neuropathy peripheral [Unknown]
  - Depression [Unknown]
  - Hypertension [Unknown]
  - Type 2 diabetes mellitus [Unknown]
  - Hyperlipidaemia [Unknown]
